FAERS Safety Report 22080376 (Version 3)
Quarter: 2023Q2

REPORT INFORMATION
  Report Type: Spontaneous
  Country: US (occurrence: US)
  Receive Date: 20230309
  Receipt Date: 20230524
  Transmission Date: 20230722
  Serious: No
  Sender: FDA-Public Use
  Company Number: US-SA-SAC00000000316841

PATIENT
  Age: 50 Year
  Sex: Female

DRUGS (1)
  1. DUPIXENT [Suspect]
     Active Substance: DUPILUMAB
     Indication: Nasal polyps
     Dosage: 300 MG, QOW
     Route: 058
     Dates: start: 202211

REACTIONS (6)
  - Injection site mass [Recovered/Resolved]
  - Muscle spasms [Recovered/Resolved]
  - Nasal polyps [Unknown]
  - Arthralgia [Unknown]
  - Injection site swelling [Unknown]
  - Injection site bruising [Unknown]
